FAERS Safety Report 8392381-1 (Version None)
Quarter: 2012Q2

REPORT INFORMATION
  Report Type: 
  Country: None (occurrence: None)
  Receive Date: 20120529
  Receipt Date: 20120521
  Transmission Date: 20120825
  Serious: Yes (Hospitalization, Other)
  Sender: FDA-Public Use
  Company Number: DE-ACTELION-A-US2012-61764

PATIENT

DRUGS (3)
  1. ADCIRCA [Concomitant]
  2. VENTAVIS [Suspect]
     Indication: PULMONARY ARTERIAL HYPERTENSION
     Dosage: 5 UG, 5ID
     Route: 055
     Dates: start: 20071023
  3. TRACLEER [Concomitant]
     Indication: PULMONARY ARTERIAL HYPERTENSION

REACTIONS (3)
  - JOINT ABSCESS [None]
  - ABSCESS DRAINAGE [None]
  - FEMORAL NECK FRACTURE [None]
